FAERS Safety Report 21147367 (Version 2)
Quarter: 2022Q3

REPORT INFORMATION
  Report Type: Spontaneous
  Country: US (occurrence: US)
  Receive Date: 20220729
  Receipt Date: 20220823
  Transmission Date: 20221027
  Serious: Yes (Other)
  Sender: FDA-Public Use
  Company Number: US-ORGANON-O2207USA002062

PATIENT
  Age: 79 Year
  Sex: Male

DRUGS (1)
  1. LOSARTAN [Suspect]
     Active Substance: LOSARTAN
     Dosage: MANUFACTURED IN INDIA WITH THE ACTIVE CHEMICAL SOURCED FROM CHINA
     Route: 048

REACTIONS (7)
  - Exophthalmos [Unknown]
  - Blood pressure fluctuation [Unknown]
  - Fall [Unknown]
  - Adverse event [Unknown]
  - Drug ineffective [Unknown]
  - Product availability issue [Unknown]
  - Product quality issue [Unknown]
